FAERS Safety Report 10373649 (Version 1)
Quarter: 2014Q1

REPORT INFORMATION
  Report Type: Spontaneous
  Country: US (occurrence: None)
  Receive Date: 20140306
  Receipt Date: 20140306
  Transmission Date: 20141002
  Serious: Yes (Hospitalization, Other)
  Sender: FDA-Public Use
  Company Number: 163-21880-13033052

PATIENT
  Age: 66 Year
  Sex: Male
  Weight: 130.64 kg

DRUGS (24)
  1. REVLIMID (LENALIDOMIDE) (5 MILLIGRAM, CAPSULES) [Suspect]
     Indication: CHRONIC LYMPHOCYTIC LEUKAEMIA
     Dosage: 5 MG, 21 IN 28 D, PO
     Route: 048
     Dates: start: 201212, end: 2013
  2. DIGOXIN [Concomitant]
  3. PLAVIX (CLOPIDOGREL SULFATE) [Concomitant]
  4. ALPRAZOLAM [Concomitant]
  5. AMBIEN (ZOLPIDEM TARTRATE) [Concomitant]
  6. HYDROCODONE/ACETAMINOPHEN (REMEDEINE) (TABLETS) [Concomitant]
  7. SOMA (CARISOPRODOL) (TABLETS) [Concomitant]
  8. IBUPROFEN [Concomitant]
  9. HYDRO (PROTEASE) [Concomitant]
  10. GABAPENTIN [Concomitant]
  11. ASA (ACETYLSALICYLIC ACID) [Concomitant]
  12. LIPITOR (ATORVASTATIN) [Concomitant]
  13. PRILOSEC (OMEPRAZOLE) (CAPSULES) [Concomitant]
  14. ALBUTEROL SULFATE HFA (SALBUTAMOL SULFATE) (INHALANT) [Concomitant]
  15. AZITHROMYCIN (TABLETS) [Concomitant]
  16. DOXYCYCLINE HYCLATE (CAPSULES) [Concomitant]
  17. ALLOPURINOL (TABLETS) [Concomitant]
  18. DOXYCYCLINE (TABLETS) [Concomitant]
  19. SULFAMETYHOXAZOLE-TMP DS (BACTRM) (TABLETS) [Concomitant]
  20. HYDROXYZINE HCL (HYDROXYZINE HYDROCLORIDE) (TABLETS) [Concomitant]
  21. PROAIR HFA (SALBUTAMOL SULFATE) (INHALANT) [Concomitant]
  22. KETOCONAZOLE [Concomitant]
  23. TERAZOSIN (CAPSULES) [Concomitant]
  24. KEPPRA (LEVETIRACETAM) [Concomitant]

REACTIONS (10)
  - Amnesia [None]
  - Weight decreased [None]
  - Hyperhidrosis [None]
  - Muscle spasms [None]
  - Fatigue [None]
  - Diarrhoea [None]
  - Contusion [None]
  - Pruritus [None]
  - Rash [None]
  - Asthenia [None]
